FAERS Safety Report 8286075-0 (Version None)
Quarter: 2012Q2

REPORT INFORMATION
  Report Type: 
  Country: None (occurrence: None)
  Receive Date: 20120416
  Receipt Date: 20120410
  Transmission Date: 20120825
  Serious: No
  Sender: FDA-Public Use
  Company Number: US-BIOGENIDEC-2012BI009592

PATIENT
  Sex: Male

DRUGS (2)
  1. TYSABRI [Suspect]
     Indication: MULTIPLE SCLEROSIS
     Route: 042
     Dates: start: 20111221
  2. AVONEX [Concomitant]
     Indication: MULTIPLE SCLEROSIS
     Route: 030
     Dates: start: 20080331

REACTIONS (5)
  - GAIT DISTURBANCE [None]
  - MIGRAINE [None]
  - PNEUMONIA [None]
  - RESPIRATORY TRACT CONGESTION [None]
  - MUSCULOSKELETAL DISORDER [None]
